FAERS Safety Report 5465333-9 (Version None)
Quarter: 2007Q3

REPORT INFORMATION
  Report Type: 
  Country: None (occurrence: None)
  Receive Date: 20070920
  Receipt Date: 20070920
  Transmission Date: 20080115
  Serious: Yes (Hospitalization)
  Sender: FDA-Public Use
  Company Number: None

PATIENT
  Sex: Female
  Weight: 102.6 kg

DRUGS (9)
  1. CARBOPLATIN [Suspect]
     Dosage: 506 MG
  2. TAXOTERE [Suspect]
     Dosage: 150 MG
  3. TAXOL [Suspect]
     Dosage: 120 MG
  4. COZAAR [Concomitant]
  5. HYDROCHLOROTHIAZIDE [Concomitant]
  6. BONIVA [Concomitant]
  7. LOPRESSOR [Concomitant]
  8. PREVACID [Concomitant]
  9. ZETIA [Concomitant]

REACTIONS (7)
  - ABDOMINAL DISTENSION [None]
  - CARBOHYDRATE ANTIGEN 125 INCREASED [None]
  - CARDIAC FAILURE CONGESTIVE [None]
  - COUGH [None]
  - LEFT VENTRICULAR HYPERTROPHY [None]
  - PLEURAL EFFUSION [None]
  - PULMONARY HYPERTENSION [None]
